FAERS Safety Report 12690451 (Version 5)
Quarter: 2019Q2

REPORT INFORMATION
  Report Type: Spontaneous
  Country: US (occurrence: US)
  Receive Date: 20160826
  Receipt Date: 20190603
  Transmission Date: 20190711
  Serious: Yes (Other)
  Sender: FDA-Public Use
  Company Number: US-PFIZER INC-2016303845

PATIENT
  Age: 2 Year
  Sex: Male
  Weight: 17 kg

DRUGS (5)
  1. BENEFIX [Suspect]
     Active Substance: COAGULATION FACTOR IX RECOMBINANT HUMAN\ISOPROPYL ALCOHOL
     Dosage: 2000 IU, DAILY (+5%) = 100 UNITS/KG DAILY ON DEMAND
  2. BENEFIX [Suspect]
     Active Substance: COAGULATION FACTOR IX RECOMBINANT HUMAN\ISOPROPYL ALCOHOL
     Indication: HAEMORRHAGE
     Dosage: 1200IU +/- 5% % DOSE: 100% # OF DOSES: 4 DAILY
  3. BENEFIX [Suspect]
     Active Substance: COAGULATION FACTOR IX RECOMBINANT HUMAN\ISOPROPYL ALCOHOL
     Dosage: 1600 IU DAILY, (+5%) DAILY #OF DOSES: 3
  4. BENEFIX [Suspect]
     Active Substance: COAGULATION FACTOR IX RECOMBINANT HUMAN\ISOPROPYL ALCOHOL
     Dosage: 100 IU/KG, DAILY (1700 IU+5% # OF DOSES: 3)
  5. BENEFIX [Suspect]
     Active Substance: COAGULATION FACTOR IX RECOMBINANT HUMAN\ISOPROPYL ALCOHOL
     Indication: FACTOR IX DEFICIENCY
     Dosage: (1270IU +/- 5% % DOSE: 100% #OF DOSES: 3)

REACTIONS (1)
  - Haemorrhage [Not Recovered/Not Resolved]
